FAERS Safety Report 7488197-0 (Version None)
Quarter: 2011Q2

REPORT INFORMATION
  Report Type: 
  Country: None (occurrence: None)
  Receive Date: 20110511
  Receipt Date: 20110426
  Transmission Date: 20111010
  Serious: Yes (Hospitalization)
  Sender: FDA-Public Use
  Company Number: 025010

PATIENT
  Sex: Female

DRUGS (11)
  1. PREDNISOLONE [Concomitant]
  2. FOLIC ACID [Concomitant]
  3. CELEXCOXIB [Concomitant]
  4. LANSOPRAZOLE [Concomitant]
  5. RISDERONATE SODIUM [Concomitant]
  6. LOXOPROFEN SODIUM [Concomitant]
  7. CIMZIA [Suspect]
     Indication: RHEUMATOID ARTHRITIS
     Dosage: SEE IMAGE
     Route: 058
     Dates: start: 20100309
  8. CIMZIA [Suspect]
     Indication: RHEUMATOID ARTHRITIS
     Dosage: SEE IMAGE
     Route: 058
     Dates: end: 20100226
  9. CIMZIA [Suspect]
     Indication: RHEUMATOID ARTHRITIS
     Dosage: SEE IMAGE
     Route: 058
     Dates: start: 20090825
  10. METHOTREXATE [Concomitant]
  11. LOSARTAN POTASSIUM [Concomitant]

REACTIONS (9)
  - SKIN DISORDER [None]
  - OSTEONECROSIS [None]
  - SYNOSTOSIS [None]
  - IMMUNOSUPPRESSION [None]
  - UPPER RESPIRATORY TRACT INFLAMMATION [None]
  - LUMBAR SPINAL STENOSIS [None]
  - NASOPHARYNGITIS [None]
  - ANKLE FRACTURE [None]
  - FALL [None]
